FAERS Safety Report 10850415 (Version 2)
Quarter: 2015Q2

REPORT INFORMATION
  Report Type: Report from Study
  Country: US (occurrence: US)
  Receive Date: 20150222
  Receipt Date: 20150427
  Transmission Date: 20150821
  Serious: Yes (Hospitalization)
  Sender: FDA-Public Use
  Company Number: PHEH2015US003351

PATIENT
  Age: 69 Year
  Sex: Female
  Weight: 38.6 kg

DRUGS (2)
  1. CLOZARIL [Suspect]
     Active Substance: CLOZAPINE
     Indication: PRODUCT USED FOR UNKNOWN INDICATION
     Route: 065
  2. CLOZAPINE. [Suspect]
     Active Substance: CLOZAPINE
     Indication: SCHIZOPHRENIA
     Dosage: 500 MG, QD (100 MG BID (TWICE A DAY) AND 300 MG, QHS (ONCE AT NIGHT) )
     Route: 048

REACTIONS (4)
  - Neutrophil count increased [Unknown]
  - Cerebrovascular accident [Recovered/Resolved with Sequelae]
  - Hemiparesis [Unknown]
  - Dyskinesia [Unknown]

NARRATIVE: CASE EVENT DATE: 20150215
